FAERS Safety Report 19975495 (Version 1)
Quarter: 2021Q4

REPORT INFORMATION
  Report Type: Spontaneous
  Country: US (occurrence: US)
  Receive Date: 20211020
  Receipt Date: 20211020
  Transmission Date: 20220303
  Serious: Yes (Life-Threatening, Other)
  Sender: FDA-Public Use
  Company Number: US-PFIZER INC-202101385939

PATIENT
  Age: 20 Year
  Sex: Female

DRUGS (2)
  1. AZITHROMYCIN ANHYDROUS [Suspect]
     Active Substance: AZITHROMYCIN ANHYDROUS
     Indication: Pneumonia
     Dosage: UNK
  2. CEFTRIAXONE [Suspect]
     Active Substance: CEFTRIAXONE
     Indication: Pneumonia
     Dosage: UNK

REACTIONS (5)
  - Pulmonary alveolar haemorrhage [Unknown]
  - Respiratory failure [Unknown]
  - Lung infiltration [Unknown]
  - Pulmonary vasculitis [Unknown]
  - Cardiac ventricular thrombosis [Unknown]
